FAERS Safety Report 9772550 (Version 2)
Quarter: 2014Q2

REPORT INFORMATION
  Report Type: Spontaneous
  Country: US (occurrence: US)
  Receive Date: 20131219
  Receipt Date: 20140603
  Transmission Date: 20141212
  Serious: Yes (Life-Threatening, Hospitalization)
  Sender: FDA-Public Use
  Company Number: US-B.I. PHARMACEUTICALS,INC./RIDGEFIELD-2013-BI-42614BP

PATIENT
  Sex: Male
  Weight: 83.91 kg

DRUGS (15)
  1. PRADAXA [Suspect]
     Indication: ATRIAL FIBRILLATION
     Dosage: 300 MG
     Route: 065
     Dates: start: 20110113, end: 20110429
  2. BABY ASPIRIN [Concomitant]
     Indication: ANTICOAGULANT THERAPY
     Dosage: 81 MG
     Route: 065
     Dates: end: 20110429
  3. LISINOPRIL [Concomitant]
     Dosage: 40 MG
     Route: 065
     Dates: start: 2007
  4. NORVASC [Concomitant]
     Dosage: 5 MG
     Route: 065
  5. TOPROL XL [Concomitant]
     Dosage: 50 MG
     Route: 065
     Dates: start: 2007
  6. LASIX [Concomitant]
     Dosage: 40 MG
     Route: 065
  7. LIPITOR [Concomitant]
     Dosage: 40 MG
     Route: 065
     Dates: start: 2008
  8. JANUVIA [Concomitant]
     Dosage: 50 MG
     Route: 065
  9. LANTUS [Concomitant]
     Dosage: 20 U
     Route: 065
     Dates: start: 1970
  10. DOXAZOSIN [Concomitant]
     Dosage: 8 MG
     Route: 065
  11. OXYBUTYNIN [Concomitant]
     Dosage: 10 MG
     Route: 065
     Dates: start: 2006
  12. MULTIVITAMIN [Concomitant]
     Route: 065
  13. ZYRTEC [Concomitant]
     Dosage: 10 MG
     Route: 065
     Dates: start: 2007
  14. TYLENOL [Concomitant]
     Route: 065
  15. COLACE [Concomitant]
     Dosage: 200 MG
     Route: 065

REACTIONS (4)
  - Anaemia [Unknown]
  - Gastrointestinal haemorrhage [Unknown]
  - Oesophageal ulcer [Unknown]
  - Gastric ulcer [Unknown]
